FAERS Safety Report 7898555-8 (Version None)
Quarter: 2011Q4

REPORT INFORMATION
  Report Type: 
  Country: None (occurrence: None)
  Receive Date: 20111107
  Receipt Date: 20111028
  Transmission Date: 20120403
  Serious: Yes (Other)
  Sender: FDA-Public Use
  Company Number: JP-ABBOTT-11P-087-0727112-00

PATIENT
  Age: 36 Year
  Sex: Female

DRUGS (1)
  1. CEFDINIR [Suspect]
     Indication: LYMPHADENOPATHY
     Route: 048
     Dates: start: 20091201

REACTIONS (1)
  - TOXIC SKIN ERUPTION [None]
